FAERS Safety Report 13271293 (Version 1)
Quarter: 2017Q1

REPORT INFORMATION
  Report Type: Spontaneous
  Country: BR (occurrence: BR)
  Receive Date: 20170226
  Receipt Date: 20170226
  Transmission Date: 20170428
  Serious: Yes (Other)
  Sender: FDA-Public Use
  Company Number: BR-009507513-1701BRA013236

PATIENT
  Age: 48 Year
  Sex: Female
  Weight: 64 kg

DRUGS (1)
  1. FOSAMAX PLUS D [Suspect]
     Active Substance: ALENDRONATE SODIUM\CHOLECALCIFEROL
     Indication: OSTEOPOROSIS PROPHYLAXIS
     Dosage: 70 MG-5600 UI, ONCE A WEEK
     Route: 048
     Dates: start: 20170125

REACTIONS (4)
  - Peripheral venous disease [Recovered/Resolved]
  - Vascular pain [Recovering/Resolving]
  - Contusion [Recovered/Resolved]
  - Vein rupture [Recovered/Resolved]

NARRATIVE: CASE EVENT DATE: 20170125
